FAERS Safety Report 12452844 (Version 1)
Quarter: 2016Q2

REPORT INFORMATION
  Report Type: Spontaneous
  Country: ES (occurrence: ES)
  Receive Date: 20160609
  Receipt Date: 20160609
  Transmission Date: 20160815
  Serious: Yes (Other)
  Sender: FDA-Public Use
  Company Number: ES-ROXANE LABORATORIES, INC.-2016-RO-01046RO

PATIENT
  Age: 68 Year
  Sex: Male

DRUGS (3)
  1. CYCLOPHOSPHAMIDE. [Suspect]
     Active Substance: CYCLOPHOSPHAMIDE
     Indication: MYCOSIS FUNGOIDES STAGE IV
     Dosage: 50 MG
     Route: 048
  2. PREDNISONE TABLETS USP, 5MG [Suspect]
     Active Substance: PREDNISONE
     Indication: MYCOSIS FUNGOIDES STAGE IV
     Route: 048
  3. PROCARBAZINE [Suspect]
     Active Substance: PROCARBAZINE
     Indication: MYCOSIS FUNGOIDES STAGE IV
     Dosage: 50 MG
     Route: 048

REACTIONS (1)
  - Cushing^s syndrome [Unknown]
